FAERS Safety Report 12550927 (Version 5)
Quarter: 2017Q3

REPORT INFORMATION
  Report Type: Report from Study
  Country: US (occurrence: US)
  Receive Date: 20160712
  Receipt Date: 20170817
  Transmission Date: 20171127
  Serious: No
  Sender: FDA-Public Use
  Company Number: PHEH2016US016638

PATIENT
  Age: 59 Year
  Sex: Male

DRUGS (1)
  1. COSENTYX [Suspect]
     Active Substance: SECUKINUMAB
     Indication: ANKYLOSING SPONDYLITIS
     Route: 058
     Dates: start: 20130101

REACTIONS (10)
  - Food intolerance [Unknown]
  - Arthritis [Unknown]
  - Motion sickness [Unknown]
  - Fatigue [Unknown]
  - Pain [Recovered/Resolved]
  - Gout [Unknown]
  - Vertigo [Unknown]
  - Food allergy [Unknown]
  - Drug ineffective [Unknown]
  - Inflammation [Unknown]

NARRATIVE: CASE EVENT DATE: 20170809
